FAERS Safety Report 21746224 (Version 1)
Quarter: 2022Q4

REPORT INFORMATION
  Report Type: Spontaneous
  Country: SE (occurrence: SE)
  Receive Date: 20221219
  Receipt Date: 20221219
  Transmission Date: 20230113
  Serious: Yes (Other)
  Sender: FDA-Public Use
  Company Number: None

PATIENT
  Sex: Male

DRUGS (5)
  1. GABAPENTIN [Suspect]
     Active Substance: GABAPENTIN
     Indication: Product used for unknown indication
     Dosage: 1 UNK, TOTAL (OKLAR MANGD)
     Route: 048
     Dates: start: 20210513, end: 20210513
  2. LISDEXAMFETAMINE DIMESYLATE [Suspect]
     Active Substance: LISDEXAMFETAMINE DIMESYLATE
     Indication: Product used for unknown indication
     Dosage: 1 UNK, TOTAL (400-500 MG)
     Route: 048
     Dates: start: 20210513, end: 20210513
  3. PROMETHAZINE HYDROCHLORIDE\THIOUREA [Suspect]
     Active Substance: PROMETHAZINE HYDROCHLORIDE\THIOUREA
     Indication: Product used for unknown indication
     Dosage: 1 UNK, TOTAL (OKLAR MANGD)
     Route: 048
     Dates: start: 20210513, end: 20210513
  4. DIAZEPAM [Suspect]
     Active Substance: DIAZEPAM
     Indication: Product used for unknown indication
     Dosage: 120 MG, TOTAL
     Route: 048
     Dates: start: 20210513, end: 20210513
  5. ZOPICLONE [Suspect]
     Active Substance: ZOPICLONE
     Indication: Product used for unknown indication
     Dosage: 1 UNK, TOTAL (80 MG ZOPIKLON, EV MYCKET MER)
     Route: 048
     Dates: start: 20210513, end: 20210513

REACTIONS (2)
  - Suicide attempt [Unknown]
  - Intentional overdose [Unknown]

NARRATIVE: CASE EVENT DATE: 20210513
